FAERS Safety Report 12327466 (Version 1)
Quarter: 2016Q2

REPORT INFORMATION
  Report Type: Spontaneous
  Country: US (occurrence: PR)
  Receive Date: 20160503
  Receipt Date: 20160503
  Transmission Date: 20160815
  Serious: No
  Sender: FDA-Public Use
  Company Number: US-PFIZER INC-2016237041

PATIENT
  Age: 35 Year
  Sex: Female

DRUGS (1)
  1. XELJANZ XR [Suspect]
     Active Substance: TOFACITINIB CITRATE
     Dosage: 1 DF, DAILY
     Route: 048
     Dates: start: 201604

REACTIONS (4)
  - Musculoskeletal chest pain [Unknown]
  - Headache [Unknown]
  - Musculoskeletal pain [Unknown]
  - Fatigue [Unknown]
